FAERS Safety Report 4284819-6 (Version None)
Quarter: 2004Q1

REPORT INFORMATION
  Report Type: 
  Country: None (occurrence: None)
  Receive Date: 20040203
  Receipt Date: 20040203
  Transmission Date: 20041129
  Serious: No
  Sender: FDA-Public Use
  Company Number: None

PATIENT
  Age: 8 Year
  Sex: Female
  Weight: 47.6277 kg

DRUGS (8)
  1. GAMIMUNE [Suspect]
     Indication: BLOOD IMMUNOGLOBULIN G DECREASED
     Dosage: 15 MG MONTHLY IV
     Route: 042
     Dates: start: 20030818, end: 20040202
  2. GAMIMUNE [Suspect]
  3. ORAPRED [Concomitant]
  4. ADVAIR DISKUS 100/50 [Concomitant]
  5. NASONEX [Concomitant]
  6. SINGULAIR [Concomitant]
  7. NEXIUM [Concomitant]
  8. ALBUTEROL [Concomitant]

REACTIONS (4)
  - HEADACHE [None]
  - MENINGITIS ASEPTIC [None]
  - NAUSEA [None]
  - VOMITING [None]
